FAERS Safety Report 18974039 (Version 1)
Quarter: 2021Q1

REPORT INFORMATION
  Report Type: Report from Study
  Country: GB (occurrence: GB)
  Receive Date: 20210305
  Receipt Date: 20210305
  Transmission Date: 20210420
  Serious: No
  Sender: FDA-Public Use
  Company Number: GB-TAKEDA-GB202024881

PATIENT
  Age: 70 Year
  Sex: Female

DRUGS (4)
  1. ICATIBANT [Suspect]
     Active Substance: ICATIBANT ACETATE
     Indication: HEREDITARY ANGIOEDEMA
     Dosage: 30 MILLIGRAM, PREFILLED SYRINGE, UNKNOWN
     Route: 065
  2. ICATIBANT [Suspect]
     Active Substance: ICATIBANT ACETATE
     Indication: HEREDITARY ANGIOEDEMA
     Dosage: 30 MILLIGRAM, PREFILLED SYRINGE, UNKNOWN
     Route: 065
  3. ICATIBANT [Suspect]
     Active Substance: ICATIBANT ACETATE
     Dosage: 30 MILLIGRAM, ACUTE
     Route: 058
     Dates: start: 201606
  4. ICATIBANT [Suspect]
     Active Substance: ICATIBANT ACETATE
     Dosage: 30 MILLIGRAM, ACUTE
     Route: 058
     Dates: start: 201606

REACTIONS (4)
  - No adverse event [Unknown]
  - Syringe issue [Unknown]
  - Device breakage [Unknown]
  - Incorrect dose administered [Unknown]
